FAERS Safety Report 7710756-8 (Version None)
Quarter: 2011Q3

REPORT INFORMATION
  Report Type: 
  Country: None (occurrence: None)
  Receive Date: 20110825
  Receipt Date: 20110816
  Transmission Date: 20111222
  Serious: Yes (Other)
  Sender: FDA-Public Use
  Company Number: GB-TEVA-297204ISR

PATIENT
  Age: 61 Year
  Sex: Female

DRUGS (1)
  1. RANITIDINE [Suspect]
     Dates: start: 20110524

REACTIONS (2)
  - VISION BLURRED [None]
  - INTRAOCULAR PRESSURE INCREASED [None]
